FAERS Safety Report 21799945 (Version 2)
Quarter: 2023Q1

REPORT INFORMATION
  Report Type: Spontaneous
  Country: US (occurrence: None)
  Receive Date: 20221230
  Receipt Date: 20230208
  Transmission Date: 20230418
  Serious: No
  Sender: FDA-Public Use
  Company Number: 2022A396286

PATIENT
  Sex: Male
  Weight: 90.7 kg

DRUGS (5)
  1. BUDESONIDE\FORMOTEROL\GLYCOPYRRONIUM [Suspect]
     Active Substance: BUDESONIDE\FORMOTEROL\GLYCOPYRRONIUM
     Indication: Chronic obstructive pulmonary disease
     Dosage: 160/9/4.8 MCG, 2 INHALATIONS 2 TIMES A DAY
     Route: 055
     Dates: start: 202210
  2. BUDESONIDE\FORMOTEROL\GLYCOPYRRONIUM [Suspect]
     Active Substance: BUDESONIDE\FORMOTEROL\GLYCOPYRRONIUM
     Indication: Asthma
     Dosage: 160/9/4.8 MCG, 2 INHALATIONS 2 TIMES A DAY
     Route: 055
     Dates: start: 202210
  3. BUDESONIDE\FORMOTEROL\GLYCOPYRRONIUM [Suspect]
     Active Substance: BUDESONIDE\FORMOTEROL\GLYCOPYRRONIUM
     Indication: Emphysema
     Dosage: 160/9/4.8 MCG, 2 INHALATIONS 2 TIMES A DAY
     Route: 055
     Dates: start: 202210
  4. SYMBICORT [Suspect]
     Active Substance: BUDESONIDE\FORMOTEROL FUMARATE DIHYDRATE
     Indication: Asthma
     Dosage: 160/4.5 MCG, 2 INHALATIONS 2 TIMES A DAY
     Route: 055
  5. SYMBICORT [Suspect]
     Active Substance: BUDESONIDE\FORMOTEROL FUMARATE DIHYDRATE
     Indication: Chronic obstructive pulmonary disease
     Dosage: 160/4.5 MCG, 2 INHALATIONS 2 TIMES A DAY
     Route: 055

REACTIONS (6)
  - Dyspnoea [Unknown]
  - Device use issue [Unknown]
  - Drug ineffective [Unknown]
  - Off label use [Unknown]
  - Device issue [Unknown]
  - Intentional device use issue [Unknown]
